FAERS Safety Report 20454334 (Version 1)
Quarter: 2022Q1

REPORT INFORMATION
  Report Type: Spontaneous
  Country: DE (occurrence: DE)
  Receive Date: 20220210
  Receipt Date: 20220210
  Transmission Date: 20220424
  Serious: Yes (Hospitalization)
  Sender: FDA-Public Use
  Company Number: None

PATIENT
  Age: 61 Year
  Sex: Male
  Weight: 90 kg

DRUGS (10)
  1. OXALIPLATIN [Suspect]
     Active Substance: OXALIPLATIN
     Indication: Adjuvant therapy
     Dosage: 5MG/ML 200MG, 10:15 A.M. TO 12:15 P.M. DISSOLVED IN 554 ML VOLUME (CONCENTRATION 0.487 MG/ML)
     Route: 042
     Dates: start: 20211118, end: 20211118
  2. ATORVASTATIN [Concomitant]
     Active Substance: ATORVASTATIN
     Indication: Acute myocardial infarction
     Dosage: 0-0-1
  3. DUTASTERIDE [Concomitant]
     Active Substance: DUTASTERIDE
     Indication: Benign prostatic hyperplasia
     Dosage: 0-1-0 (0,5/0,4MG)
  4. ASPIRIN [Concomitant]
     Active Substance: ASPIRIN
     Indication: Acute myocardial infarction
     Dosage: 1-0-0
  5. ONDANSETRON [Concomitant]
     Active Substance: ONDANSETRON
     Indication: Chemotherapy side effect prophylaxis
     Dosage: 9:45 UHR
     Dates: start: 20211118
  6. BISOPROLOL [Concomitant]
     Active Substance: BISOPROLOL
     Indication: Coronary artery disease
     Dosage: 1-0-1
  7. EZETIMIBE [Concomitant]
     Active Substance: EZETIMIBE
     Indication: Acute myocardial infarction
     Dosage: 0-0-1
  8. CHOLESTYRAMINE [Concomitant]
     Active Substance: CHOLESTYRAMINE
     Indication: Coronary artery disease
     Dosage: 4G 1-0-0
  9. DEXAMETHASONE [Concomitant]
     Active Substance: DEXAMETHASONE
     Indication: Chemotherapy side effect prophylaxis
     Dosage: 9:45 UHR
     Dates: start: 20211118
  10. METAMIZOLE [Concomitant]
     Active Substance: METAMIZOLE
     Indication: Clavicle fracture
     Dosage: 30 TROPFEN 1-1-1

REACTIONS (5)
  - Nausea [Recovered/Resolved]
  - Stridor [Recovered/Resolved]
  - Dyspnoea [Recovered/Resolved]
  - Tachypnoea [Recovered/Resolved]
  - Cold sweat [Recovered/Resolved]

NARRATIVE: CASE EVENT DATE: 20211118
